FAERS Safety Report 5206050-X (Version None)
Quarter: 2007Q1

REPORT INFORMATION
  Report Type: 
  Country: None (occurrence: None)
  Receive Date: 20070105
  Receipt Date: 20070105
  Transmission Date: 20070707
  Serious: Yes (Hospitalization)
  Sender: FDA-Public Use
  Company Number: None

PATIENT
  Age: 52 Year
  Sex: Female
  Weight: 70 kg

DRUGS (9)
  1. INSULIN [Suspect]
     Indication: DIABETES MELLITUS INSULIN-DEPENDENT
     Dosage: SS, SUB-Q   LONG TIME
     Route: 058
  2. INSULIN [Suspect]
     Indication: HYPERGLYCAEMIA
     Dosage: SS, SUB-Q   LONG TIME
     Route: 058
  3. CLONIDINE [Concomitant]
  4. VALSARTAN [Concomitant]
  5. ETODOLAC [Concomitant]
  6. GABAPENTIN [Concomitant]
  7. LABETALOL HCL [Concomitant]
  8. LISINOPRIL [Concomitant]
  9. SIMVASTATIN [Concomitant]

REACTIONS (6)
  - BLOOD GLUCOSE INCREASED [None]
  - DEPRESSED LEVEL OF CONSCIOUSNESS [None]
  - HYPOGLYCAEMIA [None]
  - LETHARGY [None]
  - MENTAL STATUS CHANGES [None]
  - UNRESPONSIVE TO STIMULI [None]
